FAERS Safety Report 12992994 (Version 1)
Quarter: 2016Q4

REPORT INFORMATION
  Report Type: Spontaneous
  Country: US (occurrence: US)
  Receive Date: 20161202
  Receipt Date: 20161202
  Transmission Date: 20170207
  Serious: Yes (Death, Life-Threatening, Hospitalization, Other)
  Sender: FDA-Public Use
  Company Number: US-AUROBINDO-AUR-APL-2016-14538

PATIENT
  Age: 68 Year
  Sex: Female

DRUGS (1)
  1. LISINOPRIL. [Suspect]
     Active Substance: LISINOPRIL
     Indication: PRODUCT USED FOR UNKNOWN INDICATION
     Dosage: UNK
     Route: 065

REACTIONS (8)
  - Encephalopathy [Unknown]
  - Vomiting [Unknown]
  - Acute hepatic failure [Fatal]
  - Nausea [Unknown]
  - Hypophagia [Unknown]
  - Intestinal perforation [Unknown]
  - Ileus [Unknown]
  - Septic shock [Unknown]
